FAERS Safety Report 23655682 (Version 3)
Quarter: 2024Q1

REPORT INFORMATION
  Report Type: Spontaneous
  Country: US (occurrence: US)
  Receive Date: 20240321
  Receipt Date: 20240325
  Transmission Date: 20240410
  Serious: Yes (Hospitalization)
  Sender: FDA-Public Use
  Company Number: US-SA-SAC20240320000041

PATIENT
  Age: 59 Year
  Sex: Male

DRUGS (11)
  1. DUPIXENT [Suspect]
     Active Substance: DUPILUMAB
     Indication: Dermatitis atopic
     Dosage: 300 MG, QOW
     Route: 058
  2. DUPIXENT [Suspect]
     Active Substance: DUPILUMAB
     Indication: Rhinitis allergic
  3. DUPIXENT [Suspect]
     Active Substance: DUPILUMAB
     Indication: Essential hypertension
  4. DUPIXENT [Suspect]
     Active Substance: DUPILUMAB
     Indication: Polyneuropathy
  5. DUPIXENT [Suspect]
     Active Substance: DUPILUMAB
     Indication: Hyperlipidaemia
  6. DUPIXENT [Suspect]
     Active Substance: DUPILUMAB
     Indication: Headache
  7. DUPIXENT [Suspect]
     Active Substance: DUPILUMAB
     Indication: Vitamin D deficiency
  8. DUPIXENT [Suspect]
     Active Substance: DUPILUMAB
     Indication: Sinusitis
  9. MAXEPA [FISH OIL] [Concomitant]
  10. SUPER MULTIPLE [Concomitant]
  11. VITAMIN B COMPLEX [Concomitant]
     Active Substance: CYANOCOBALAMIN\DEXPANTHENOL\NIACINAMIDE\PYRIDOXINE HYDROCHLORIDE\RIBOFLAVIN 5^-PHOSPHATE SODIUM\THIA

REACTIONS (4)
  - Cardiac disorder [Unknown]
  - Hospitalisation [Unknown]
  - Product storage error [Unknown]
  - Product use in unapproved indication [Unknown]
